FAERS Safety Report 15208829 (Version 1)
Quarter: 2018Q3

REPORT INFORMATION
  Report Type: Spontaneous
  Country: CH (occurrence: CH)
  Receive Date: 20180727
  Receipt Date: 20180727
  Transmission Date: 20181010
  Serious: Yes (Other)
  Sender: FDA-Public Use
  Company Number: CH-APOTEX-2018AP017777

PATIENT
  Age: 26 Year
  Sex: Male

DRUGS (1)
  1. DEROXAT FILM?COATED TABLETS [Suspect]
     Active Substance: PAROXETINE HYDROCHLORIDE
     Dosage: 20 MG, QD
     Route: 048
     Dates: start: 20180627, end: 20180704

REACTIONS (4)
  - Febrile convulsion [Unknown]
  - Muscular weakness [Unknown]
  - Hepatic enzyme increased [Unknown]
  - Leukopenia [Unknown]

NARRATIVE: CASE EVENT DATE: 201807
